FAERS Safety Report 19516782 (Version 3)
Quarter: 2021Q3

REPORT INFORMATION
  Report Type: Report from Study
  Country: MX (occurrence: MX)
  Receive Date: 20210711
  Receipt Date: 20210923
  Transmission Date: 20211014
  Serious: No
  Sender: FDA-Public Use
  Company Number: NVSC2021MX150073

PATIENT
  Sex: Female
  Weight: 38 kg

DRUGS (1)
  1. MYFORTIC [Suspect]
     Active Substance: MYCOPHENOLATE SODIUM
     Indication: SYSTEMIC LUPUS ERYTHEMATOSUS
     Dosage: 2 DF, BID (360 MG)
     Route: 048
     Dates: start: 20210629

REACTIONS (1)
  - Product use in unapproved indication [Unknown]
